FAERS Safety Report 13299216 (Version 1)
Quarter: 2017Q1

REPORT INFORMATION
  Report Type: Report from Study
  Country: SG (occurrence: SG)
  Receive Date: 20170306
  Receipt Date: 20170306
  Transmission Date: 20170428
  Serious: Yes (Death)
  Sender: FDA-Public Use
  Company Number: SG-PFIZER INC-2017091511

PATIENT

DRUGS (3)
  1. OXALIPLATIN. [Suspect]
     Active Substance: OXALIPLATIN
     Indication: GASTRIC CANCER
     Dosage: 100 MG/M2, ON DAY 1 OF A 21-DAY CYCLE, WITH 14 DAYS ON AND 7 DAYS OFF TREATMENT
     Route: 042
  2. PACLITAXEL. [Suspect]
     Active Substance: PACLITAXEL
     Indication: GASTRIC CANCER
     Dosage: 40 MG/M2, ON DAYS 1 AND 8 OF A 21-DAY CYCLE, WITH 14 DAYS ON AND 7 DAYS OFF TREATMENT
     Route: 033
  3. CAPECITABINE. [Suspect]
     Active Substance: CAPECITABINE
     Indication: GASTRIC CANCER
     Dosage: 1000 MG/M2, 2X/DAY ON DAYS 1-14, OF A 21-DAY CYCLE, WITH 14 DAYS ON AND 7 DAYS OFF TREATMENT
     Route: 048

REACTIONS (1)
  - Neutropenic sepsis [Fatal]
